FAERS Safety Report 10474037 (Version 3)
Quarter: 2014Q4

REPORT INFORMATION
  Report Type: Spontaneous
  Country: US (occurrence: US)
  Receive Date: 20140924
  Receipt Date: 20141229
  Transmission Date: 20150528
  Serious: Yes (Death, Hospitalization, Other)
  Sender: FDA-Public Use
  Company Number: US-GLAXOSMITHKLINE-A1090569A

PATIENT
  Sex: Male
  Weight: 80.3 kg

DRUGS (2)
  1. INLYTA [Concomitant]
     Active Substance: AXITINIB
  2. VOTRIENT [Suspect]
     Active Substance: PAZOPANIB HYDROCHLORIDE
     Indication: RENAL CELL CARCINOMA
     Dosage: 200MG TABLETS
     Route: 048

REACTIONS (3)
  - Death [Fatal]
  - Hypercalcaemia [Unknown]
  - Treatment failure [Unknown]
